FAERS Safety Report 21796071 (Version 1)
Quarter: 2022Q4

REPORT INFORMATION
  Report Type: Spontaneous
  Country: US (occurrence: None)
  Receive Date: 20221228
  Receipt Date: 20221228
  Transmission Date: 20230113
  Serious: No
  Sender: FDA-Public Use
  Company Number: None

PATIENT
  Age: 87 Year
  Sex: Female
  Weight: 67.59 kg

DRUGS (22)
  1. LENALIDOMIDE [Suspect]
     Active Substance: LENALIDOMIDE
     Indication: Plasma cell myeloma
     Dosage: FREQUENCY : DAILY;?
     Route: 048
     Dates: start: 202212
  2. ACYCLOVIR [Concomitant]
     Active Substance: ACYCLOVIR
  3. ASCORBIC ACID [Concomitant]
     Active Substance: ASCORBIC ACID
  4. ASPIRIN [Concomitant]
     Active Substance: ASPIRIN
  5. CINNAMON [Concomitant]
     Active Substance: CINNAMON
  6. CRANBERRY [Concomitant]
     Active Substance: CRANBERRY
  7. DARZALEX [Concomitant]
     Active Substance: DARATUMUMAB
  8. DEXAMETHASONE [Concomitant]
     Active Substance: DEXAMETHASONE
  9. FISH OIL [Concomitant]
     Active Substance: FISH OIL
  10. FLECAINIDE [Concomitant]
     Active Substance: FLECAINIDE
  11. LEVOTHYROXINE [Concomitant]
     Active Substance: LEVOTHYROXINE
  12. LISINOPRIL [Concomitant]
     Active Substance: LISINOPRIL
  13. LOPERAMIDE [Concomitant]
     Active Substance: LOPERAMIDE
  14. LORATADINE [Concomitant]
     Active Substance: LORATADINE
  15. MAGNESIUM OXIDE [Concomitant]
     Active Substance: MAGNESIUM OXIDE
  16. MELATONIN [Concomitant]
     Active Substance: MELATONIN
  17. DIETARY SUPPLEMENT\HERBALS\MILK THISTLE [Concomitant]
     Active Substance: DIETARY SUPPLEMENT\HERBALS\MILK THISTLE
  18. MONTELUKAST [Concomitant]
     Active Substance: MONTELUKAST SODIUM
  19. OMEPRAZOLE [Concomitant]
     Active Substance: OMEPRAZOLE
  20. SERTRALINE [Concomitant]
     Active Substance: SERTRALINE HYDROCHLORIDE
  21. SPIRONOLACTONE [Concomitant]
     Active Substance: SPIRONOLACTONE
  22. ZOFRAN ODT [Concomitant]
     Active Substance: ONDANSETRON HYDROCHLORIDE

REACTIONS (1)
  - Clostridium difficile infection [None]

NARRATIVE: CASE EVENT DATE: 20221221
